FAERS Safety Report 7793532-X (Version None)
Quarter: 2011Q4

REPORT INFORMATION
  Report Type: 
  Country: None (occurrence: None)
  Receive Date: 20111003
  Receipt Date: 20110415
  Transmission Date: 20120403
  Serious: No
  Sender: FDA-Public Use
  Company Number: US-BAYER-2011-033416

PATIENT
  Age: 61 Year
  Sex: Female
  Weight: 55.782 kg

DRUGS (9)
  1. FAMPRIDINE [Suspect]
     Indication: MULTIPLE SCLEROSIS
     Dosage: 10 MG, QD
     Route: 048
     Dates: start: 20110331
  2. FAMPRIDINE [Suspect]
     Indication: GAIT DISTURBANCE
     Dosage: 10 MG, QD
     Route: 048
     Dates: start: 20101101
  3. CIPROFLOXACIN [Interacting]
     Indication: URINARY TRACT INFECTION
     Dosage: UNK
     Dates: start: 20110331, end: 20110402
  4. FAMPRIDINE [Suspect]
     Indication: BALANCE DISORDER
     Dosage: 10 MG, BID
     Route: 048
     Dates: end: 20110301
  5. ZANAFLEX [Interacting]
     Indication: MUSCLE SPASTICITY
     Dosage: 2 MG, UNK
     Dates: start: 20060101
  6. ZANAFLEX [Interacting]
     Indication: MULTIPLE SCLEROSIS
     Dosage: 4 MG, UNK
     Dates: start: 20060101
  7. ZANAFLEX [Interacting]
     Indication: GAIT DISTURBANCE
     Dosage: 6 MG, UNK
     Dates: start: 20060101
  8. BACLOFEN [Concomitant]
     Dosage: UNK
     Dates: start: 20060101
  9. VENLAFAXINE HYDROCHLORIDE [Concomitant]
     Dosage: UNK
     Dates: start: 20090101

REACTIONS (9)
  - URINARY TRACT INFECTION [None]
  - THERAPY REGIMEN CHANGED [None]
  - BACK PAIN [None]
  - FEELING HOT [None]
  - DIZZINESS [None]
  - INSOMNIA [None]
  - DRUG EFFECT DECREASED [None]
  - FATIGUE [None]
  - TREMOR [None]
